FAERS Safety Report 23842433 (Version 1)
Quarter: 2024Q2

REPORT INFORMATION
  Report Type: Spontaneous
  Country: PL (occurrence: PL)
  Receive Date: 20240510
  Receipt Date: 20240510
  Transmission Date: 20240716
  Serious: Yes (Other)
  Sender: FDA-Public Use
  Company Number: None

PATIENT
  Sex: Male

DRUGS (1)
  1. LAMOTRIGINE [Suspect]
     Active Substance: LAMOTRIGINE
     Indication: Depression
     Dosage: DRUG TAKEN IN THE MORNING AND EVENING
     Route: 065

REACTIONS (3)
  - Rash vesicular [Unknown]
  - Rash [Unknown]
  - Body temperature increased [Unknown]
